FAERS Safety Report 6211764-9 (Version None)
Quarter: 2009Q2

REPORT INFORMATION
  Report Type: 
  Country: None (occurrence: None)
  Receive Date: 20090522
  Receipt Date: 20090323
  Transmission Date: 20091009
  Serious: No
  Sender: FDA-Public Use
  Company Number: 8044245

PATIENT
  Age: 57 Year
  Sex: Female
  Weight: 89.1 kg

DRUGS (6)
  1. CIMZIA [Suspect]
     Indication: CROHN'S DISEASE
     Dosage: 400 MG SC
     Route: 058
     Dates: start: 20090227
  2. WELLBUTRIN [Concomitant]
  3. ABILIFY [Concomitant]
  4. MICARDIS [Concomitant]
  5. IMURAN [Concomitant]
  6. PREDNISONE [Concomitant]

REACTIONS (1)
  - RASH PRURITIC [None]
